FAERS Safety Report 12958797 (Version 1)
Quarter: 2016Q4

REPORT INFORMATION
  Report Type: Spontaneous
  Country: US (occurrence: US)
  Receive Date: 20161117
  Receipt Date: 20161117
  Transmission Date: 20170207
  Serious: Yes (Hospitalization)
  Sender: FDA-Public Use
  Company Number: None

PATIENT
  Age: 69 Year
  Sex: Male

DRUGS (15)
  1. CEFEPIME [Suspect]
     Active Substance: CEFEPIME HYDROCHLORIDE
     Indication: PNEUMONIA
     Route: 042
     Dates: start: 20160927, end: 20161005
  2. ACETAMINOPHEN. [Concomitant]
     Active Substance: ACETAMINOPHEN
  3. APIXABAN [Concomitant]
     Active Substance: APIXABAN
  4. METOPROLOL. [Concomitant]
     Active Substance: METOPROLOL
  5. SENNA [Concomitant]
     Active Substance: SENNA LEAF\SENNOSIDES\SENNOSIDES A AND B
  6. POILYETHYLENE GLYCOL 3350 [Concomitant]
  7. TERAZOSIN [Concomitant]
     Active Substance: TERAZOSIN\TERAZOSIN HYDROCHLORIDE
  8. QUETIAPINE. [Concomitant]
     Active Substance: QUETIAPINE
  9. INSULIN [Concomitant]
     Active Substance: INSULIN NOS
  10. VALPROIC ACID. [Concomitant]
     Active Substance: VALPROIC ACID
  11. ZINC SULFATE [Concomitant]
     Active Substance: ZINC SULFATE\ZINC SULFATE ANHYDROUS
  12. ATORVASTATIN [Concomitant]
     Active Substance: ATORVASTATIN
  13. LISINOPRIL. [Concomitant]
     Active Substance: LISINOPRIL
  14. OXYCODONE [Concomitant]
     Active Substance: OXYCODONE
  15. RANITIDINE. [Concomitant]
     Active Substance: RANITIDINE

REACTIONS (13)
  - Chest X-ray abnormal [None]
  - Confusional state [None]
  - Atelectasis [None]
  - Pneumonia [None]
  - Neurosyphilis [None]
  - Muscle twitching [None]
  - White blood cell count increased [None]
  - Body temperature increased [None]
  - Convulsive threshold lowered [None]
  - Somnolence [None]
  - Pleural effusion [None]
  - Abnormal behaviour [None]
  - Acute kidney injury [None]

NARRATIVE: CASE EVENT DATE: 20161005
